FAERS Safety Report 7743126-7 (Version None)
Quarter: 2011Q3

REPORT INFORMATION
  Report Type: 
  Country: None (occurrence: None)
  Receive Date: 20110908
  Receipt Date: 20110908
  Transmission Date: 20111222
  Serious: Yes (Hospitalization, Disabling)
  Sender: FDA-Public Use
  Company Number: None

PATIENT
  Sex: Male
  Weight: 117.9352 kg

DRUGS (1)
  1. TOPAMAX [Suspect]
     Indication: PAIN
     Dosage: 100 MG 1X A DAY - 1ST WK  2X A DAY - 2ND WK
     Dates: start: 20020131, end: 20020213

REACTIONS (9)
  - NERVOUS SYSTEM DISORDER [None]
  - AMNESIA [None]
  - CONVULSION [None]
  - BURNING SENSATION [None]
  - DISTURBANCE IN ATTENTION [None]
  - INSOMNIA [None]
  - COGNITIVE DISORDER [None]
  - SKIN BURNING SENSATION [None]
  - MENTAL IMPAIRMENT [None]
